FAERS Safety Report 7861674-6 (Version None)
Quarter: 2011Q4

REPORT INFORMATION
  Report Type: 
  Country: None (occurrence: None)
  Receive Date: 20111027
  Receipt Date: 20111020
  Transmission Date: 20120403
  Serious: Yes (Other)
  Sender: FDA-Public Use
  Company Number: US-US-EMD SERONO, INC.-7091409

PATIENT
  Sex: Female

DRUGS (2)
  1. SAIZEN [Suspect]
     Dates: start: 20110801
  2. SAIZEN [Suspect]
     Indication: GROWTH HORMONE DEFICIENCY
     Dates: start: 20110211

REACTIONS (1)
  - GLIOMA [None]
